FAERS Safety Report 11674239 (Version 2)
Quarter: 2015Q4

REPORT INFORMATION
  Report Type: Spontaneous
  Country: TN (occurrence: TN)
  Receive Date: 20151028
  Receipt Date: 20151105
  Transmission Date: 20160304
  Serious: Yes (Hospitalization, Other)
  Sender: FDA-Public Use
  Company Number: TN-WATSON-2015-12098

PATIENT
  Age: 45 Year
  Sex: Female

DRUGS (1)
  1. PIROXICAM (UNKNOWN) [Suspect]
     Active Substance: PIROXICAM
     Indication: ARTHRALGIA
     Dosage: 20 MG, DAILY
     Route: 065

REACTIONS (2)
  - Drug reaction with eosinophilia and systemic symptoms [Recovered/Resolved]
  - Autoimmune haemolytic anaemia [Recovered/Resolved]
